FAERS Safety Report 26059495 (Version 8)
Quarter: 2025Q4

REPORT INFORMATION
  Report Type: Report from Study
  Country: US (occurrence: US)
  Receive Date: 20251118
  Receipt Date: 20251229
  Transmission Date: 20260117
  Serious: Yes (Other)
  Sender: MYLAN
  Company Number: US-MYLANLABS-2025M1097433

PATIENT
  Sex: Female
  Weight: 54.43 kg

DRUGS (1)
  1. GLATIRAMER ACETATE [Suspect]
     Active Substance: GLATIRAMER ACETATE
     Indication: Multiple sclerosis
     Dosage: 40 MILLIGRAM, 3XW (3 TIMES A WEEK)

REACTIONS (21)
  - Multiple sclerosis [Unknown]
  - Trigeminal neuralgia [Unknown]
  - Frustration tolerance decreased [Unknown]
  - Memory impairment [Unknown]
  - Feeling abnormal [Unknown]
  - Limb injury [Unknown]
  - Contusion [Unknown]
  - Impaired healing [Unknown]
  - Nasopharyngitis [Recovering/Resolving]
  - Oropharyngeal pain [Unknown]
  - Injection site scar [Unknown]
  - Flushing [Unknown]
  - Injection site reaction [Unknown]
  - Injection site pain [Unknown]
  - Headache [Unknown]
  - Cough [Not Recovered/Not Resolved]
  - Injection site swelling [Unknown]
  - Injection site bruising [Unknown]
  - Injection site haemorrhage [Unknown]
  - Incorrect route of product administration [Unknown]
  - Wrong technique in product usage process [Unknown]
